FAERS Safety Report 8523114-3 (Version None)
Quarter: 2012Q3

REPORT INFORMATION
  Report Type: 
  Country: None (occurrence: None)
  Receive Date: 20120720
  Receipt Date: 20120716
  Transmission Date: 20120928
  Serious: Yes (Hospitalization)
  Sender: FDA-Public Use
  Company Number: US-PFIZER INC-2012173686

PATIENT
  Sex: Female
  Weight: 121 kg

DRUGS (18)
  1. MULTI-VITAMINS [Concomitant]
     Dosage: UNK
  2. POTASSIUM [Concomitant]
     Dosage: 180 MG, UNK
  3. SYNTHROID [Concomitant]
     Indication: THYROID DISORDER
     Dosage: 100MCG DAILY
  4. NORVASC [Concomitant]
     Dosage: 5 MG, DAILY
  5. ASCORBIC ACID [Concomitant]
     Dosage: UNK
  6. FIBER POWDER [Concomitant]
     Dosage: UNK
  7. AMIODARONE HCL [Suspect]
     Indication: ATRIAL FIBRILLATION
     Dosage: UNK, DAILY
     Dates: start: 20120301, end: 20120501
  8. COUMADIN [Concomitant]
     Indication: ANTICOAGULANT THERAPY
     Dosage: UNK, DAILY
  9. GABAPENTIN [Concomitant]
     Dosage: UNK
  10. DIGOXIN [Concomitant]
     Dosage: 0.125 MG, DAILY
  11. MAGNESIUM OXIDE [Concomitant]
     Dosage: UNK
  12. LASIX [Concomitant]
     Indication: DIURETIC THERAPY
     Dosage: 40MG TWO TIMES A DAY
  13. CARVEDILOL [Concomitant]
     Dosage: 12.5MG TWO TIMES A DAY
  14. VITAMIN E [Concomitant]
     Dosage: 400 IU, UNK
  15. AMIODARONE HCL [Suspect]
     Indication: ATRIAL FLUTTER
  16. TYLENOL DOUBLE STRENGTH [Concomitant]
     Dosage: UNK
  17. CALCIUM [Concomitant]
     Dosage: 500 MG, UNK
  18. PREDNISONE [Concomitant]
     Dosage: 5 MG, DAILY

REACTIONS (2)
  - PULMONARY HAEMORRHAGE [None]
  - TOXICITY TO VARIOUS AGENTS [None]
